FAERS Safety Report 5834953-1 (Version None)
Quarter: 2008Q3

REPORT INFORMATION
  Report Type: 
  Country: None (occurrence: None)
  Receive Date: 20080806
  Receipt Date: 20080728
  Transmission Date: 20090109
  Serious: Yes (Other)
  Sender: FDA-Public Use
  Company Number: US-JNJFOC-20080204792

PATIENT
  Sex: Female

DRUGS (3)
  1. INVEGA [Suspect]
     Indication: SCHIZOPHRENIA
     Route: 048
  2. RISPERDAL [Suspect]
     Indication: BIPOLAR DISORDER
  3. KLONOPIN [Concomitant]
     Indication: BIPOLAR DISORDER

REACTIONS (2)
  - BREAST CANCER [None]
  - EPIDERMAL GROWTH FACTOR RECEPTOR INCREASED [None]
